FAERS Safety Report 25762020 (Version 1)
Quarter: 2025Q3

REPORT INFORMATION
  Report Type: Spontaneous
  Country: US (occurrence: None)
  Receive Date: 20250904
  Receipt Date: 20250904
  Transmission Date: 20251021
  Serious: Yes (Other)
  Sender: FDA-CTU
  Company Number: None

PATIENT
  Age: 83 Year
  Sex: Female
  Weight: 59.87 kg

DRUGS (18)
  1. FLECAINIDE [Suspect]
     Active Substance: FLECAINIDE
     Indication: Atrial fibrillation
     Dosage: 1 PILL 2 X A DY BY MUTH
     Route: 048
     Dates: start: 2012, end: 202505
  2. Pace Maker [Concomitant]
  3. ELIQUIS [Concomitant]
     Active Substance: APIXABAN
  4. Metoprolol Tartate 50 mg 2x [Concomitant]
  5. Telmisarton [Concomitant]
  6. Prevastatin sodium 40mg 1x [Concomitant]
  7. DICYCLOMINE 10 MG 2X [Concomitant]
  8. LEVOTHYROXINE [Concomitant]
     Active Substance: LEVOTHYROXINE
  9. PROPAFENONE HCL 150MG 3X [Concomitant]
     Dosage: FREQUENCY : 3 TIMES A DAY;?
  10. MAGNESIUM-L-THREONATE [Concomitant]
  11. INFLAMATONE MOVE FREE ADVANCED ULTRA [Concomitant]
  12. CLARATIN [Concomitant]
  13. COMPLETE SR VITAMINS [Concomitant]
  14. VITAMIN D3 [Concomitant]
     Active Substance: CHOLECALCIFEROL
  15. JWH-018 [Concomitant]
     Active Substance: JWH-018
  16. VITAMIN C [Concomitant]
     Active Substance: ASCORBIC ACID
  17. ZINC [Concomitant]
     Active Substance: ZINC
  18. PEPCID [Concomitant]
     Active Substance: FAMOTIDINE

REACTIONS (5)
  - Fatigue [None]
  - Condition aggravated [None]
  - Gait inability [None]
  - Dyspnoea [None]
  - Therapy change [None]

NARRATIVE: CASE EVENT DATE: 20250101
